FAERS Safety Report 7705827-6 (Version None)
Quarter: 2011Q3

REPORT INFORMATION
  Report Type: 
  Country: None (occurrence: None)
  Receive Date: 20110824
  Receipt Date: 20110815
  Transmission Date: 20111222
  Serious: No
  Sender: FDA-Public Use
  Company Number: CA-ELI_LILLY_AND_COMPANY-CA201108004606

PATIENT
  Sex: Male

DRUGS (5)
  1. ZYPREXA [Suspect]
     Dosage: 15 MG, EACH EVENING
  2. LORAZEPAM [Concomitant]
  3. CELEXA [Concomitant]
  4. ASPIRIN [Concomitant]
  5. TEMAZEPAM [Concomitant]

REACTIONS (5)
  - DIABETES MELLITUS [None]
  - CHEST PAIN [None]
  - BLOOD TRIGLYCERIDES INCREASED [None]
  - HYPERTENSION [None]
  - LEUKOPENIA [None]
